FAERS Safety Report 8186110-4 (Version None)
Quarter: 2012Q1

REPORT INFORMATION
  Report Type: 
  Country: None (occurrence: None)
  Receive Date: 20120301
  Receipt Date: 20120213
  Transmission Date: 20120608
  Serious: Yes (Hospitalization)
  Sender: FDA-Public Use
  Company Number: 1626962-2012-00001

PATIENT
  Age: 76 Year
  Sex: Female
  Weight: 88.4514 kg

DRUGS (3)
  1. MARCAINE [Suspect]
  2. TRAUMEEL [Suspect]
     Indication: CONTUSION
     Dosage: 2.2ML, ONCE 014 1 DOSE
     Route: 058
  3. TRAUMEEL [Suspect]
     Indication: PAIN
     Dosage: 2.2ML, ONCE 014 1 DOSE
     Route: 058

REACTIONS (6)
  - ABASIA [None]
  - UNEVALUABLE EVENT [None]
  - ANAPHYLACTIC REACTION [None]
  - NO THERAPEUTIC RESPONSE [None]
  - FEELING ABNORMAL [None]
  - ATRIAL FIBRILLATION [None]
